FAERS Safety Report 24061039 (Version 4)
Quarter: 2024Q3

REPORT INFORMATION
  Report Type: Spontaneous
  Country: US (occurrence: US)
  Receive Date: 20240708
  Receipt Date: 20240921
  Transmission Date: 20241017
  Serious: No
  Sender: ROCHE
  Company Number: US-ROCHE-10000015620

PATIENT
  Sex: Male

DRUGS (3)
  1. ERIVEDGE [Suspect]
     Active Substance: VISMODEGIB
     Indication: Malaise
     Dosage: TAKE 1 CAPSULE DAILY BY MOUTH
     Route: 048
     Dates: start: 2024
  2. ERIVEDGE [Suspect]
     Active Substance: VISMODEGIB
     Route: 048
  3. ERIVEDGE [Suspect]
     Active Substance: VISMODEGIB
     Route: 048

REACTIONS (4)
  - Ageusia [Not Recovered/Not Resolved]
  - Off label use [Unknown]
  - Alopecia [Recovered/Resolved]
  - Decreased appetite [Recovered/Resolved]
